FAERS Safety Report 7138723-6 (Version None)
Quarter: 2010Q4

REPORT INFORMATION
  Report Type: 
  Country: None (occurrence: None)
  Receive Date: 20101201
  Receipt Date: 20101201
  Transmission Date: 20110411
  Serious: Yes (Other)
  Sender: FDA-Public Use
  Company Number: None

PATIENT
  Sex: Female

DRUGS (1)
  1. SPRYCEL [Suspect]
     Indication: MYELOID LEUKAEMIA
     Dosage: 100 MG QD PO
     Route: 048
     Dates: start: 20100708, end: 20101124

REACTIONS (1)
  - PULMONARY OEDEMA [None]
